FAERS Safety Report 7744625-4 (Version None)
Quarter: 2011Q3

REPORT INFORMATION
  Report Type: 
  Country: None (occurrence: None)
  Receive Date: 20110912
  Receipt Date: 20110909
  Transmission Date: 20111222
  Serious: Yes (Other)
  Sender: FDA-Public Use
  Company Number: US-PFIZER INC-2011212994

PATIENT
  Sex: Male
  Weight: 102 kg

DRUGS (13)
  1. LIPITOR [Suspect]
     Indication: CARDIAC ARREST
     Dosage: UNK
     Route: 048
     Dates: start: 20060301, end: 20061001
  2. LORATADINE [Concomitant]
     Indication: HYPERSENSITIVITY
     Dosage: 10 MG,DAILY
     Route: 048
  3. ACETYLSALICYLIC ACID [Concomitant]
     Indication: CARDIAC DISORDER
     Dosage: 325 MG,DAILY
     Route: 048
  4. FUROSEMIDE [Concomitant]
     Indication: CARDIAC DISORDER
     Dosage: 20 MG,DAILY
     Route: 048
  5. CARVEDILOL [Concomitant]
     Indication: CARDIAC DISORDER
     Dosage: 25 MG, 2X/DAY
     Route: 048
  6. SIMVASTATIN [Concomitant]
     Indication: CARDIAC ARREST
     Dosage: 80 MG,DAILY
     Route: 048
     Dates: start: 20061001
  7. NIACIN [Concomitant]
     Indication: CARDIAC ARREST
     Dosage: 500 MG,DAILY
     Route: 048
  8. PLAVIX [Concomitant]
     Indication: CARDIAC DISORDER
     Dosage: 75 MG,DAILY
     Route: 048
  9. LOSARTAN [Concomitant]
     Indication: CARDIAC DISORDER
     Dosage: UNK, 2X/DAY
     Route: 048
  10. ISOSORBIDE DINITRATE [Concomitant]
     Indication: CARDIAC DISORDER
     Dosage: 20 MG, 2X/DAY
     Route: 048
  11. LIPITOR [Suspect]
     Dosage: 80 MG, DAILY
     Route: 048
     Dates: start: 20110904, end: 20110905
  12. DIGOXIN [Concomitant]
     Indication: CARDIAC DISORDER
     Dosage: 125 MG,DAILY
  13. PANTOPRAZOLE [Concomitant]
     Indication: GASTROOESOPHAGEAL REFLUX DISEASE
     Dosage: 40 MG,DAILY
     Route: 048

REACTIONS (1)
  - CARDIAC DISORDER [None]
